FAERS Safety Report 4744686-0 (Version None)
Quarter: 2005Q3

REPORT INFORMATION
  Report Type: 
  Country: None (occurrence: None)
  Receive Date: 20050812
  Receipt Date: 20050812
  Transmission Date: 20060218
  Serious: Yes (Life-Threatening, Hospitalization)
  Sender: FDA-Public Use
  Company Number: CTU 256119E

PATIENT
  Age: 76 Year
  Sex: Male
  Weight: 70 kg

DRUGS (9)
  1. CETUXIMAB (MG/M2), WK 1-9, WK 15-44 [Suspect]
     Indication: OESOPHAGEAL CARCINOMA
     Dosage: 250 IV WK 1 OF CETUXIMAB IS LOADING DOSE 400MG/M2
     Route: 042
     Dates: start: 20050722, end: 20050729
  2. IRINOTECAN (MG/M2), WK 2,3,5,6 [Suspect]
     Indication: OESOPHAGEAL CARCINOMA
     Dosage: 65 IV
     Route: 042
     Dates: start: 20050729, end: 20050805
  3. CISPLATIN (MG/M2), WK 2,3,5,6 [Suspect]
     Indication: OESOPHAGEAL CARCINOMA
     Dosage: 30 IV
     Route: 042
     Dates: start: 20050729, end: 20050805
  4. XRT D1-5, WK 2-7 [Suspect]
     Indication: OESOPHAGEAL CARCINOMA
     Dosage: 180GCY
     Dates: start: 20050725, end: 20050809
  5. ACETAMINOPHEN [Concomitant]
  6. DEXAMETHASONE [Concomitant]
  7. COMPAZINE [Concomitant]
  8. LORAZEPAM [Concomitant]
  9. CLEOCIN [Concomitant]

REACTIONS (7)
  - DEHYDRATION [None]
  - LEUKOPENIA [None]
  - NEUTROPENIA [None]
  - PNEUMONIA ASPIRATION [None]
  - RASH [None]
  - SOMNOLENCE [None]
  - WEIGHT DECREASED [None]
